FAERS Safety Report 7941894-2 (Version None)
Quarter: 2011Q4

REPORT INFORMATION
  Report Type: 
  Country: None (occurrence: None)
  Receive Date: 20111128
  Receipt Date: 20111118
  Transmission Date: 20120403
  Serious: Yes (Hospitalization)
  Sender: FDA-Public Use
  Company Number: US-BAYER-201037219NA

PATIENT
  Age: 18 Year
  Sex: Female
  Weight: 70.748 kg

DRUGS (4)
  1. SYNTHROID [Concomitant]
     Dosage: UNK
     Dates: start: 20010401
  2. YAZ [Suspect]
     Dosage: UNK
     Dates: start: 20091101
  3. LEVOTHYROXINE SODIUM [Concomitant]
     Dosage: UNK
     Dates: start: 20010401
  4. CEPHALEXIN [Concomitant]

REACTIONS (4)
  - DEPRESSION [None]
  - ANXIETY [None]
  - DEEP VEIN THROMBOSIS [None]
  - PULMONARY EMBOLISM [None]
